FAERS Safety Report 11971093 (Version 1)
Quarter: 2016Q1

REPORT INFORMATION
  Report Type: Spontaneous
  Country: US (occurrence: None)
  Receive Date: 20160127
  Receipt Date: 20160127
  Transmission Date: 20160526
  Serious: Yes (Other)
  Sender: FDA-Public Use
  Company Number: None

PATIENT
  Age: 2 Year
  Sex: Female

DRUGS (1)
  1. TOPIRIMATE 100 MG ZYGENERICS [Suspect]
     Active Substance: TOPIRAMATE
     Indication: GENERALISED TONIC-CLONIC SEIZURE
     Route: 048
     Dates: start: 20160113, end: 20160122

REACTIONS (3)
  - Product substitution issue [None]
  - Product quality issue [None]
  - Petit mal epilepsy [None]

NARRATIVE: CASE EVENT DATE: 20160122
